FAERS Safety Report 10689637 (Version 1)
Quarter: 2015Q1

REPORT INFORMATION
  Report Type: Spontaneous
  Country: GB (occurrence: GB)
  Receive Date: 20150105
  Receipt Date: 20150105
  Transmission Date: 20150720
  Serious: Yes (Hospitalization, Disabling, Other)
  Sender: FDA-Public Use
  Company Number: GB-RANBAXY-2014RR-91048

PATIENT

DRUGS (2)
  1. TOPIRAMATE. [Suspect]
     Active Substance: TOPIRAMATE
     Indication: MIGRAINE
     Dosage: 25MG IN THE MORNING AND 50MG AT NIGHT
     Route: 048
     Dates: end: 20141105
  2. TOPIRAMATE. [Suspect]
     Active Substance: TOPIRAMATE
     Indication: MIGRAINE
     Dosage: STARTED AT 25 PER DAY INCREASED TO 75 G PER DAY - 25 G MORNING AND 50G AT NIGHT
     Route: 048
     Dates: start: 20141001

REACTIONS (4)
  - Confusional state [Recovered/Resolved]
  - Constipation [Unknown]
  - Anal fissure [Not Recovered/Not Resolved]
  - Pain [Unknown]

NARRATIVE: CASE EVENT DATE: 20141007
